FAERS Safety Report 12626491 (Version 2)
Quarter: 2016Q3

REPORT INFORMATION
  Report Type: Spontaneous
  Country: US (occurrence: US)
  Receive Date: 20160805
  Receipt Date: 20160829
  Transmission Date: 20161109
  Serious: Yes (Other)
  Sender: FDA-Public Use
  Company Number: US-PFIZER INC-2016319041

PATIENT
  Age: 62 Year
  Sex: Male
  Weight: 109.75 kg

DRUGS (1)
  1. BENEFIX [Suspect]
     Active Substance: COAGULATION FACTOR IX RECOMBINANT HUMAN\ISOPROPYL ALCOHOL
     Indication: FACTOR IX DEFICIENCY
     Dosage: 6800 IU +/- 10%, % DOSE:100%, # OF DOSES: 4, ON DEMAND

REACTIONS (1)
  - Haemorrhage [Unknown]
